FAERS Safety Report 8291468-1 (Version None)
Quarter: 2012Q2

REPORT INFORMATION
  Report Type: 
  Country: None (occurrence: None)
  Receive Date: 20120417
  Receipt Date: 20120406
  Transmission Date: 20120825
  Serious: Yes (Life-Threatening)
  Sender: FDA-Public Use
  Company Number: JP-PFIZER INC-2011112983

PATIENT
  Age: 73 Year
  Sex: Male
  Weight: 52 kg

DRUGS (22)
  1. IRINOTECAN HCL [Suspect]
     Dosage: UNK
     Route: 041
     Dates: start: 20100714, end: 20100714
  2. FLUOROURACIL [Suspect]
     Indication: COLORECTAL CANCER
     Dosage: 600 MG/BODY (394.7 MG/M2)
     Route: 040
     Dates: start: 20100519, end: 20100519
  3. FLUOROURACIL [Suspect]
     Dosage: UNK
     Route: 041
     Dates: start: 20100714, end: 20100714
  4. FLUOROURACIL [Suspect]
     Dosage: UNK
     Route: 040
     Dates: start: 20101025, end: 20101025
  5. FLUOROURACIL [Suspect]
     Dosage: UNK
     Route: 040
     Dates: start: 20100714, end: 20100714
  6. IRINOTECAN HCL [Suspect]
     Indication: COLORECTAL CANCER
     Dosage: 200 MG/BODY (131.6 MG/M2)
     Route: 041
     Dates: start: 20100519, end: 20100519
  7. ERBITUX [Concomitant]
     Indication: COLORECTAL CANCER
     Dosage: 600 MG/BODY
     Route: 041
     Dates: start: 20100519, end: 20100519
  8. IRINOTECAN HCL [Suspect]
     Dosage: UNK
     Route: 041
     Dates: start: 20100927, end: 20100927
  9. FLUOROURACIL [Suspect]
     Dosage: UNK
     Route: 041
     Dates: start: 20100830, end: 20100830
  10. FLUOROURACIL [Suspect]
     Dosage: UNK
     Route: 041
     Dates: start: 20100927, end: 20100927
  11. CALCIUM LEVOFOLINATE [Concomitant]
     Dosage: 200 MG/BODY (131.6 MG/M2)
     Route: 041
     Dates: start: 20100623
  12. FLUOROURACIL [Suspect]
     Dosage: 400 MG/BODY (263.2 MG/M2)
     Route: 040
     Dates: start: 20100623, end: 20100623
  13. IRINOTECAN HCL [Suspect]
     Dosage: 100 MG/BODY (65.8 MG/M2)
     Route: 041
     Dates: start: 20100830, end: 20100830
  14. FLUOROURACIL [Suspect]
     Dosage: 2400 MG/BODY/D1-2 (1578.9 MG/M2/D1-2)
     Route: 041
     Dates: start: 20100623, end: 20100623
  15. FLUOROURACIL [Suspect]
     Dosage: UNK
     Route: 040
     Dates: start: 20100927, end: 20100927
  16. ERBITUX [Concomitant]
     Dosage: 375 MG/BODY
     Route: 041
     Dates: start: 20100623, end: 20101101
  17. IRINOTECAN HCL [Suspect]
     Dosage: UNK
     Route: 040
     Dates: start: 20101025, end: 20101025
  18. FLUOROURACIL [Suspect]
     Dosage: 3600 MG/BODY/D1-2 (2368.4 MG/M2/D1-2)
     Route: 041
     Dates: start: 20100519, end: 20100519
  19. FLUOROURACIL [Suspect]
     Dosage: UNK
     Route: 040
     Dates: start: 20100830, end: 20100830
  20. FLUOROURACIL [Suspect]
     Dosage: UNK
     Route: 041
     Dates: start: 20101025, end: 20101025
  21. CALCIUM LEVOFOLINATE [Concomitant]
     Indication: COLORECTAL CANCER
     Dosage: 300 MG/BODY (197.4 MG/M2)
     Route: 041
     Dates: start: 20100519
  22. IRINOTECAN HCL [Suspect]
     Dosage: 150 MG/BODY (98.7 MG/M2)
     Route: 041
     Dates: start: 20100623, end: 20100623

REACTIONS (2)
  - HAEMOGLOBIN DECREASED [None]
  - THROMBOCYTOPENIA [None]
